FAERS Safety Report 14834106 (Version 1)
Quarter: 2018Q2

REPORT INFORMATION
  Report Type: Spontaneous
  Country: US (occurrence: US)
  Receive Date: 20180501
  Receipt Date: 20180501
  Transmission Date: 20180711
  Serious: Yes (Hospitalization)
  Sender: FDA-Public Use
  Company Number: US-ROCHE-2067079

PATIENT
  Age: 53 Year
  Sex: Female
  Weight: 113.5 kg

DRUGS (2)
  1. TOPOTECAN [Concomitant]
     Active Substance: TOPOTECAN HYDROCHLORIDE
     Indication: OVARIAN CANCER
     Dosage: ON 27/DEC/2017, SHE RECEIVED HER MOST RECENT DOSE OF TOPOTECAN PRIOR TO THE ONSET OF THE ADVERSE EVE
     Route: 065
     Dates: start: 20171115
  2. AVASTIN [Suspect]
     Active Substance: BEVACIZUMAB
     Indication: OVARIAN CANCER
     Dosage: 25 MG/ML?ON 27/DEC/2017, SHE RECEIVED HER FOURTH AND MOST RECENT DOSE OF BEVACIZUMAB PRIOR TO THE ON
     Route: 042
     Dates: start: 20171115

REACTIONS (1)
  - Intestinal perforation [Recovering/Resolving]

NARRATIVE: CASE EVENT DATE: 20180113
